FAERS Safety Report 6302959-4 (Version None)
Quarter: 2009Q3

REPORT INFORMATION
  Report Type: 
  Country: None (occurrence: None)
  Receive Date: 20090810
  Receipt Date: 20090803
  Transmission Date: 20100115
  Serious: Yes (Hospitalization)
  Sender: FDA-Public Use
  Company Number: B0587665A

PATIENT
  Sex: Male

DRUGS (6)
  1. LEXIVA [Suspect]
     Indication: HIV INFECTION
     Dosage: 700MG TWICE PER DAY
     Route: 048
     Dates: start: 20050819
  2. RETROVIR [Suspect]
     Indication: HIV INFECTION
     Dosage: 100MG FOUR TIMES PER DAY
     Route: 048
     Dates: start: 19960926, end: 19991013
  3. RETROVIR [Suspect]
     Dosage: 400MG PER DAY
     Route: 048
     Dates: start: 20060329
  4. NORVIR [Suspect]
     Indication: HIV INFECTION
     Dosage: 100MG PER DAY
     Route: 048
     Dates: start: 20050815, end: 20050818
  5. NORVIR [Suspect]
     Dosage: 200MG PER DAY
     Route: 048
     Dates: start: 20050819
  6. TRUVADA [Suspect]
     Indication: HIV INFECTION
     Route: 048
     Dates: start: 20060329

REACTIONS (1)
  - OSTEOMA [None]
